FAERS Safety Report 14304518 (Version 1)
Quarter: 2017Q4

REPORT INFORMATION
  Report Type: Spontaneous
  Country: JP (occurrence: JP)
  Receive Date: 20171219
  Receipt Date: 20171219
  Transmission Date: 20180321
  Serious: Yes (Other)
  Sender: FDA-Public Use
  Company Number: JP-OTSUKA-JP-2011-10781

PATIENT
  Age: 71 Year
  Sex: Male
  Weight: 65 kg

DRUGS (15)
  1. FUROSEMIDE. [Concomitant]
     Active Substance: FUROSEMIDE
     Indication: OEDEMA
     Dosage: 20 MG, QD
     Route: 048
     Dates: start: 20090518
  2. BROMOCRIPTINE MESYLATE [Concomitant]
     Active Substance: BROMOCRIPTINE MESYLATE
     Dosage: PADOPARINE TABS
     Dates: start: 20081223
  3. TASMOLIN [Concomitant]
     Active Substance: BIPERIDEN
     Dosage: 1 MG, UNK
  4. ROHYPNOL [Concomitant]
     Active Substance: FLUNITRAZEPAM
     Indication: INSOMNIA
     Dosage: 1 MG, QD
     Route: 048
     Dates: start: 2003
  5. PADOPARINE [Concomitant]
     Indication: MAJOR DEPRESSION
     Dosage: 2.5 MG, BID
     Route: 048
     Dates: start: 20081223
  6. SERENACE [Concomitant]
     Active Substance: HALOPERIDOL
     Dosage: .75 MG, UNK
     Dates: start: 20110520
  7. SENNA [Concomitant]
     Active Substance: SENNA LEAF\SENNOSIDES\SENNOSIDES A AND B
     Dosage: TABS
  8. CARBAMAZEPINE. [Concomitant]
     Active Substance: CARBAMAZEPINE
     Dosage: TABLET
     Dates: start: 20100106
  9. FUROSEMIDE. [Concomitant]
     Active Substance: FUROSEMIDE
     Dosage: TABLET.
     Dates: start: 20090518
  10. ABILIFY [Suspect]
     Active Substance: ARIPIPRAZOLE
     Indication: MAJOR DEPRESSION
     Dosage: 3 MG, QD
     Route: 048
     Dates: start: 20090303, end: 20091109
  11. NITOROL R [Concomitant]
     Active Substance: ISOSORBIDE DINITRATE
     Indication: ARRHYTHMIA
     Dosage: 20 MG, BID
     Route: 048
     Dates: start: 2003
  12. LEXIN [Concomitant]
     Active Substance: CEPHALEXIN
     Indication: MAJOR DEPRESSION
     Dosage: 200 MG, BID
     Route: 048
     Dates: start: 20100106
  13. ABILIFY [Suspect]
     Active Substance: ARIPIPRAZOLE
     Dosage: 3 MG, BID
     Route: 048
     Dates: start: 20091110, end: 20110520
  14. VASOLAN [Concomitant]
     Active Substance: VERAPAMIL HYDROCHLORIDE
     Indication: ARRHYTHMIA
     Dosage: 40 MG, QD
     Route: 048
     Dates: start: 20090309
  15. FLUNITRAZEPAM [Concomitant]
     Active Substance: FLUNITRAZEPAM
     Dosage: TABS
     Dates: start: 2003

REACTIONS (1)
  - Blood glucose decreased [Not Recovered/Not Resolved]

NARRATIVE: CASE EVENT DATE: 20110404
